FAERS Safety Report 14342640 (Version 2)
Quarter: 2018Q2

REPORT INFORMATION
  Report Type: Report from Study
  Country: JP (occurrence: JP)
  Receive Date: 20180102
  Receipt Date: 20180425
  Transmission Date: 20180711
  Serious: Yes (Other)
  Sender: FDA-Public Use
  Company Number: JP-ACTELION-A-CH2017-164849

PATIENT
  Age: 5 Year
  Sex: Female

DRUGS (14)
  1. ADCIRCA [Concomitant]
     Active Substance: TADALAFIL
  2. PULMICORT TURBUHALER [Concomitant]
     Active Substance: BUDESONIDE
  3. FLOLAN [Concomitant]
     Active Substance: EPOPROSTENOL SODIUM
  4. NITRIC OXIDE. [Concomitant]
     Active Substance: NITRIC OXIDE
  5. OPSUMIT [Suspect]
     Active Substance: MACITENTAN
     Indication: PULMONARY ARTERIAL HYPERTENSION
     Dosage: 2.4 MG, QD
     Route: 048
     Dates: start: 20151228
  6. NEORAL [Concomitant]
     Active Substance: CYCLOSPORINE
  7. URSODEOXYCHOLIC ACID [Concomitant]
     Active Substance: URSODIOL
  8. OXYGEN. [Concomitant]
     Active Substance: OXYGEN
  9. FERROMIA [Concomitant]
     Active Substance: SODIUM FERROUS CITRATE
  10. OPSUMIT [Suspect]
     Active Substance: MACITENTAN
     Dosage: 1.5 MG, QD
     Route: 048
     Dates: start: 20150902, end: 20151227
  11. TACROLIMUS. [Suspect]
     Active Substance: TACROLIMUS
     Indication: PRODUCT USED FOR UNKNOWN INDICATION
     Route: 048
  12. ONON [Concomitant]
     Active Substance: PRANLUKAST
  13. SANDIMMUN [Concomitant]
     Active Substance: CYCLOSPORINE
  14. PROGRAF [Concomitant]
     Active Substance: TACROLIMUS\TACROLIMUS ANHYDROUS

REACTIONS (3)
  - Hypertensive encephalopathy [Recovered/Resolved]
  - Liver transplant [Recovered/Resolved]
  - Hepatic function abnormal [Recovered/Resolved]

NARRATIVE: CASE EVENT DATE: 20160115
